FAERS Safety Report 10149910 (Version 2)
Quarter: 2014Q2

REPORT INFORMATION
  Report Type: Spontaneous
  Country: US (occurrence: US)
  Receive Date: 20140502
  Receipt Date: 20140506
  Transmission Date: 20141212
  Serious: No
  Sender: FDA-Public Use
  Company Number: CHPA2014US005896

PATIENT
  Age: 73 Year
  Sex: Female

DRUGS (4)
  1. VOLTAREN GEL [Suspect]
     Indication: INTERVERTEBRAL DISC DEGENERATION
     Dosage: UNK, BID
     Route: 061
  2. VOLTAREN GEL [Suspect]
     Indication: OCCIPITAL NEURALGIA
  3. VOLTAREN GEL [Suspect]
     Indication: OSTEOARTHRITIS
  4. VOLTAREN GEL [Suspect]
     Indication: OFF LABEL USE

REACTIONS (3)
  - Inappropriate schedule of drug administration [Unknown]
  - Drug administered at inappropriate site [Unknown]
  - Therapeutic response changed [Unknown]
